FAERS Safety Report 24985670 (Version 1)
Quarter: 2025Q1

REPORT INFORMATION
  Report Type: Spontaneous
  Country: CN (occurrence: None)
  Receive Date: 20250219
  Receipt Date: 20250219
  Transmission Date: 20250409
  Serious: No
  Sender: ALEXION PHARMACEUTICALS
  Company Number: CN-AstraZeneca-2015SE58185

PATIENT
  Age: 73 Year
  Weight: 65 kg

DRUGS (1)
  1. ESOMEPRAZOLE MAGNESIUM [Suspect]
     Active Substance: ESOMEPRAZOLE MAGNESIUM
     Indication: Gastrointestinal haemorrhage
     Dosage: 20 MILLIGRAM, BID

REACTIONS (1)
  - Tinnitus [Recovering/Resolving]
